FAERS Safety Report 25173081 (Version 1)
Quarter: 2025Q2

REPORT INFORMATION
  Report Type: Spontaneous
  Country: US (occurrence: US)
  Receive Date: 20250408
  Receipt Date: 20250408
  Transmission Date: 20250717
  Serious: Yes (Other)
  Sender: AMGEN
  Company Number: US-AMGEN-USASP2025065216

PATIENT
  Age: 84 Year
  Sex: Female

DRUGS (4)
  1. REPATHA [Suspect]
     Active Substance: EVOLOCUMAB
     Indication: Aortic valve replacement
     Dosage: 140 MILLIGRAM, Q2WK
     Route: 058
  2. REPATHA [Suspect]
     Active Substance: EVOLOCUMAB
     Indication: Vascular graft
     Dosage: 140 MILLIGRAM, QWK, (140 MG)
     Route: 058
  3. REPATHA [Suspect]
     Active Substance: EVOLOCUMAB
     Indication: Blood cholesterol increased
  4. REPATHA [Suspect]
     Active Substance: EVOLOCUMAB
     Indication: Coronary arterial stent insertion

REACTIONS (6)
  - Cerebrovascular accident [Unknown]
  - Accidental exposure to product [Unknown]
  - Therapy interrupted [Unknown]
  - Device difficult to use [Unknown]
  - Drug dose omission by device [Unknown]
  - Product communication issue [Unknown]

NARRATIVE: CASE EVENT DATE: 20250328
